FAERS Safety Report 4576470-5 (Version None)
Quarter: 2005Q1

REPORT INFORMATION
  Report Type: 
  Country: None (occurrence: None)
  Receive Date: 20050119
  Receipt Date: 20040401
  Transmission Date: 20050727
  Serious: Yes (Other)
  Sender: FDA-Public Use
  Company Number: A03200401045

PATIENT
  Age: 77 Year
  Sex: Male
  Weight: 64.4108 kg

DRUGS (7)
  1. PLAVIX [Suspect]
     Indication: ARTERIAL OCCLUSIVE DISEASE
     Dosage: 75 MG QD - ORAL
     Route: 048
     Dates: start: 20040330
  2. PLAVIX [Suspect]
     Indication: CEREBROVASCULAR ACCIDENT
     Dosage: 75 MG QD - ORAL
     Route: 048
     Dates: start: 20040330
  3. ENALAPRIL MALEATE [Concomitant]
  4. FEXOFENADINE HYDROCHLORIDE [Concomitant]
  5. ACETYLSALICYLIC ACID [Concomitant]
  6. HYDROCHLOROTHIAZIDE [Concomitant]
  7. VITAMINS [Concomitant]

REACTIONS (2)
  - HALLUCINATION, VISUAL [None]
  - TINNITUS [None]
